FAERS Safety Report 9919806 (Version 2)
Quarter: 2014Q2

REPORT INFORMATION
  Report Type: Spontaneous
  Country: US (occurrence: US)
  Receive Date: 20140224
  Receipt Date: 20140410
  Transmission Date: 20141212
  Serious: Yes (Other)
  Sender: FDA-Public Use
  Company Number: US-PFIZER INC-2014050853

PATIENT
  Age: 63 Year
  Sex: Female
  Weight: 109 kg

DRUGS (6)
  1. SUTENT [Suspect]
     Indication: RENAL CANCER
     Dosage: 50 MG, CYCLIC (QD X 4 WKS, OFF X 2 WKS)
     Route: 048
     Dates: start: 20140117
  2. SUTENT [Suspect]
     Dosage: 37.5 MG, CYCLIC (12.5 AND 25 MG, DAILY - 14 DAYS ON/14 DAYS OFF)
     Route: 048
     Dates: start: 20140121
  3. TRAJENTA [Concomitant]
     Dosage: UNK
  4. CYMBALTA [Concomitant]
     Dosage: UNK
  5. SYNTHROID [Concomitant]
     Dosage: UNK
  6. LEVOTHYROXINE [Concomitant]
     Dosage: UNK

REACTIONS (2)
  - Oral pain [Unknown]
  - Oral pain [Unknown]
